FAERS Safety Report 5103350-9 (Version None)
Quarter: 2006Q3

REPORT INFORMATION
  Report Type: 
  Country: None (occurrence: None)
  Receive Date: 20060913
  Receipt Date: 20060713
  Transmission Date: 20061208
  Serious: Yes (Hospitalization, Other)
  Sender: FDA-Public Use
  Company Number: US-AMGEN-US186207

PATIENT
  Sex: Female

DRUGS (8)
  1. ENBREL [Suspect]
     Indication: RHEUMATOID ARTHRITIS
     Route: 058
     Dates: start: 20060626, end: 20060701
  2. METHOTREXATE [Concomitant]
     Route: 048
  3. FOLIC ACID [Concomitant]
  4. PREDNISONE TAB [Concomitant]
  5. LOPRESSOR [Concomitant]
     Route: 048
  6. PLAQUENIL [Concomitant]
  7. MOBIC [Concomitant]
  8. PREDNISONE TAB [Concomitant]

REACTIONS (8)
  - CHILLS [None]
  - HYPERSENSITIVITY [None]
  - INJECTION SITE RASH [None]
  - PROTEINURIA [None]
  - PYREXIA [None]
  - RASH GENERALISED [None]
  - SYSTEMIC LUPUS ERYTHEMATOSUS [None]
  - TACHYCARDIA [None]
